FAERS Safety Report 4824629-1 (Version None)
Quarter: 2005Q4

REPORT INFORMATION
  Report Type: 
  Country: None (occurrence: None)
  Receive Date: 20051108
  Receipt Date: 20050727
  Transmission Date: 20060501
  Serious: Yes (Death, Hospitalization, Other)
  Sender: FDA-Public Use
  Company Number: 2005100256

PATIENT
  Age: 81 Year
  Sex: Female
  Weight: 58 kg

DRUGS (8)
  1. IRINOTECAN HCL [Suspect]
     Indication: RECTOSIGMOID CANCER
     Dosage: 80 MG/M2 (CYCLICAL, INTRAVENOUS
     Route: 042
     Dates: start: 20040315, end: 20041116
  2. FLUOROURACIL [Concomitant]
  3. CETUXIMAB (CETUXIMAB) [Concomitant]
  4. DEXAMETHASONE [Concomitant]
  5. ATROPINE SULFATE [Concomitant]
  6. ZOFRAN (ONDANSETRON HYDROHCLORIDE) [Concomitant]
  7. TAVEGIL (CLEMASTINE) [Concomitant]
  8. FOLIC ACID [Concomitant]

REACTIONS (8)
  - BODY TEMPERATURE INCREASED [None]
  - CIRCULATORY COLLAPSE [None]
  - DIARRHOEA [None]
  - GENERAL PHYSICAL HEALTH DETERIORATION [None]
  - MALIGNANT NEOPLASM PROGRESSION [None]
  - METASTASES TO LIVER [None]
  - RECTOSIGMOID CANCER [None]
  - TACHYCARDIA PAROXYSMAL [None]
